FAERS Safety Report 19241751 (Version 1)
Quarter: 2021Q2

REPORT INFORMATION
  Report Type: Spontaneous
  Country: IT (occurrence: IT)
  Receive Date: 20210511
  Receipt Date: 20210511
  Transmission Date: 20210717
  Serious: Yes (Disabling)
  Sender: FDA-Public Use
  Company Number: IT-ALLERGAN-2117577US

PATIENT
  Sex: Male
  Weight: 60 kg

DRUGS (1)
  1. CITALOPRAM HYDROBROMIDE ? BP [Suspect]
     Active Substance: CITALOPRAM HYDROBROMIDE
     Indication: PANIC ATTACK
     Dosage: 20 ?G, QD
     Route: 002
     Dates: start: 20170201, end: 20210201

REACTIONS (5)
  - Loss of libido [Not Recovered/Not Resolved]
  - Underdose [Unknown]
  - Hypoaesthesia [Not Recovered/Not Resolved]
  - Depressed level of consciousness [Not Recovered/Not Resolved]
  - Genital anaesthesia [Not Recovered/Not Resolved]

NARRATIVE: CASE EVENT DATE: 20210213
